FAERS Safety Report 9517124 (Version 2)
Quarter: 2013Q3

REPORT INFORMATION
  Report Type: Spontaneous
  Country: US (occurrence: US)
  Receive Date: 20130911
  Receipt Date: 20130911
  Transmission Date: 20140515
  Serious: No
  Sender: FDA-Public Use
  Company Number: US-PFIZER INC-2013258228

PATIENT
  Age: 11 Year
  Sex: Female
  Weight: 54.43 kg

DRUGS (1)
  1. CHILDREN^S MOTRIN [Suspect]
     Indication: PAIN MANAGEMENT
     Dosage: 3 TEASPOONS, ONCE EVERY 8 HOURS
     Route: 048
     Dates: start: 20130714, end: 20130715

REACTIONS (1)
  - Drug ineffective [Unknown]
